FAERS Safety Report 5909691-7 (Version None)
Quarter: 2008Q4

REPORT INFORMATION
  Report Type: 
  Country: None (occurrence: None)
  Receive Date: 20081007
  Receipt Date: 20080929
  Transmission Date: 20090506
  Serious: Yes (Other)
  Sender: FDA-Public Use
  Company Number: US-RANBAXY-2008RR-18330

PATIENT
  Age: 49 Year
  Sex: Male

DRUGS (2)
  1. LISINOPRIL [Suspect]
     Indication: HYPERTENSION
  2. HYDROCHLOROTHIAZIDE [Suspect]
     Indication: HYPERTENSION

REACTIONS (1)
  - ANGIOEDEMA [None]
